FAERS Safety Report 6781355-X (Version None)
Quarter: 2010Q2

REPORT INFORMATION
  Report Type: 
  Country: None (occurrence: None)
  Receive Date: 20100621
  Receipt Date: 20100617
  Transmission Date: 20101027
  Serious: Yes (Life-Threatening)
  Sender: FDA-Public Use
  Company Number: PHHY2010IT39649

PATIENT
  Sex: Female

DRUGS (1)
  1. LAMISIL [Suspect]
     Indication: CANDIDIASIS
     Dosage: 250 MG, UNK
     Route: 048
     Dates: start: 20090524, end: 20090524

REACTIONS (2)
  - PRURITUS [None]
  - RESPIRATORY FAILURE [None]
